FAERS Safety Report 8509889-8 (Version None)
Quarter: 2012Q3

REPORT INFORMATION
  Report Type: 
  Country: None (occurrence: None)
  Receive Date: 20120713
  Receipt Date: 20120614
  Transmission Date: 20120928
  Serious: Yes (Hospitalization, Other)
  Sender: FDA-Public Use
  Company Number: US-ELI_LILLY_AND_COMPANY-US201206005128

PATIENT
  Sex: Male

DRUGS (5)
  1. HUMULIN 70/30 [Suspect]
  2. GLUCOPHAGE                              /USA/ [Concomitant]
     Dosage: 1000 MG, BID
  3. LANTUS [Concomitant]
  4. HUMULIN 70/30 [Suspect]
     Dosage: UNK, UNKNOWN
  5. HUMULIN 70/30 [Suspect]
     Indication: DIABETES MELLITUS
     Dosage: UNK, UNKNOWN

REACTIONS (9)
  - SHOCK [None]
  - HAEMOGLOBIN DECREASED [None]
  - CONTUSION [None]
  - INCISION SITE HAEMORRHAGE [None]
  - AORTIC INJURY [None]
  - STENT PLACEMENT [None]
  - HOSPITALISATION [None]
  - DIARRHOEA [None]
  - VOMITING [None]
